FAERS Safety Report 12744524 (Version 1)
Quarter: 2016Q3

REPORT INFORMATION
  Report Type: Spontaneous
  Country: US (occurrence: US)
  Receive Date: 20160914
  Receipt Date: 20160914
  Transmission Date: 20161109
  Serious: No
  Sender: FDA-Public Use
  Company Number: US-JAZZ-2016-US-009397

PATIENT
  Sex: Male

DRUGS (11)
  1. XYREM [Suspect]
     Active Substance: SODIUM OXYBATE
     Dosage: 1.5 G, SECOND DOSE
     Route: 048
     Dates: start: 201604
  2. ALLEGRA [Concomitant]
     Active Substance: FEXOFENADINE HYDROCHLORIDE
  3. XYREM [Suspect]
     Active Substance: SODIUM OXYBATE
     Indication: NARCOLEPSY
     Dosage: 3 G, FIRST DOSE
     Route: 048
     Dates: start: 201604
  4. PROBIOTIC [Concomitant]
     Active Substance: PROBIOTICS NOS
  5. ADVIL [Concomitant]
     Active Substance: IBUPROFEN
  6. MULTIVITAMIN [Concomitant]
     Active Substance: VITAMINS
  7. TYLENOL EXTRA STRENGTH [Concomitant]
     Active Substance: ACETAMINOPHEN
  8. VITAMIN C [Concomitant]
     Active Substance: ASCORBIC ACID
  9. ALLERGY [Concomitant]
     Active Substance: UNSPECIFIED INGREDIENT
  10. LEVOTHYROXINE. [Concomitant]
     Active Substance: LEVOTHYROXINE
  11. PROVIGIL [Concomitant]
     Active Substance: MODAFINIL

REACTIONS (3)
  - Memory impairment [Unknown]
  - Unevaluable event [Unknown]
  - Libido increased [Unknown]

NARRATIVE: CASE EVENT DATE: 2016
